FAERS Safety Report 25337975 (Version 3)
Quarter: 2025Q3

REPORT INFORMATION
  Report Type: Spontaneous
  Country: EU (occurrence: EU)
  Receive Date: 20250520
  Receipt Date: 20250701
  Transmission Date: 20251021
  Serious: Yes (Hospitalization, Other)
  Sender: SANDOZ
  Company Number: EU-ETHYPHARM-2025001228

PATIENT
  Age: 16 Year
  Sex: Female

DRUGS (2)
  1. ZOLEDRONIC ACID [Suspect]
     Active Substance: ZOLEDRONIC ACID
     Indication: Osteopenia
     Dosage: 4 MG, QW(1 WEEK)
     Route: 042
  2. FILGRASTIM [Concomitant]
     Active Substance: FILGRASTIM
     Indication: Cyclic neutropenia
     Dosage: 480 UG, Q72H (EVERY 72 HOURS)
     Route: 065

REACTIONS (4)
  - Sepsis [Recovered/Resolved]
  - Osteomyelitis [Recovered/Resolved with Sequelae]
  - Osteonecrosis of jaw [Recovered/Resolved with Sequelae]
  - Off label use [Recovered/Resolved with Sequelae]
